FAERS Safety Report 4502736-0 (Version None)
Quarter: 2004Q4

REPORT INFORMATION
  Report Type: 
  Country: None (occurrence: None)
  Receive Date: 20041116
  Receipt Date: 20041108
  Transmission Date: 20050328
  Serious: Yes (Disabling)
  Sender: FDA-Public Use
  Company Number: US-MERCK-0411USA01562

PATIENT
  Age: 53 Year
  Sex: Female

DRUGS (1)
  1. PEPCID [Suspect]
     Route: 048
     Dates: start: 20010101

REACTIONS (2)
  - ABDOMINAL PAIN UPPER [None]
  - AMNESIA [None]
